FAERS Safety Report 4385497-8 (Version None)
Quarter: 2004Q2

REPORT INFORMATION
  Report Type: 
  Country: None (occurrence: None)
  Receive Date: 20040622
  Receipt Date: 20040615
  Transmission Date: 20050107
  Serious: Yes (Other)
  Sender: FDA-Public Use
  Company Number: HQWYE170502JUN04

PATIENT
  Age: 48 Year
  Sex: Female

DRUGS (10)
  1. RAPAMUNE [Suspect]
     Indication: PROPHYLAXIS AGAINST TRANSPLANT REJECTION
     Dosage: 4 MG 1X PER 1 DAY
     Route: 048
     Dates: start: 20030709
  2. PREDNISONE TAB [Suspect]
     Indication: PROPHYLAXIS AGAINST TRANSPLANT REJECTION
     Dosage: 5 MG 1X PER 1 DAY
  3. ERYTHORPOIETIN (ERYTHORPOIETIN) [Concomitant]
  4. DILTIAZEM [Concomitant]
  5. ZOCOR [Concomitant]
  6. ZOLOFT [Concomitant]
  7. RAMIPRIL [Concomitant]
  8. OMEPRAZOLE [Concomitant]
  9. FLUCLOXACILLIN (FLUCLOXACILLIN) [Concomitant]
  10. DOXYCYCLINE [Concomitant]

REACTIONS (13)
  - ACIDOSIS [None]
  - ANAEMIA [None]
  - AZOTAEMIA [None]
  - BLOOD BICARBONATE DECREASED [None]
  - BLOOD FOLATE ABNORMAL [None]
  - BLOOD PARATHYROID HORMONE ABNORMAL [None]
  - BLOOD POTASSIUM INCREASED [None]
  - DIALYSIS [None]
  - DRUG INEFFECTIVE [None]
  - FLUID OVERLOAD [None]
  - GRAFT LOSS [None]
  - KIDNEY TRANSPLANT REJECTION [None]
  - VOMITING [None]
